FAERS Safety Report 9813766 (Version 1)
Quarter: 2014Q1

REPORT INFORMATION
  Report Type: Spontaneous
  Country: CN (occurrence: CN)
  Receive Date: 20140113
  Receipt Date: 20140113
  Transmission Date: 20141002
  Serious: Yes (Death)
  Sender: FDA-Public Use
  Company Number: CN-ASTRAZENECA-2014SE02137

PATIENT
  Age: 85 Year
  Sex: Male

DRUGS (3)
  1. CASODEX [Suspect]
     Indication: PROSTATE CANCER
     Route: 048
     Dates: start: 2009
  2. DANSHEN [Concomitant]
     Indication: CARDIAC DISORDER
  3. GINGKGO LEAF [Concomitant]
     Indication: CARDIAC DISORDER

REACTIONS (1)
  - Death [Fatal]
